FAERS Safety Report 13648016 (Version 2)
Quarter: 2017Q2

REPORT INFORMATION
  Report Type: Report from Study
  Country: BE (occurrence: BE)
  Receive Date: 20170613
  Receipt Date: 20170626
  Transmission Date: 20170830
  Serious: Yes (Hospitalization, Other)
  Sender: FDA-Public Use
  Company Number: BE-ASTELLAS-2017US022658

PATIENT
  Age: 56 Year
  Sex: Male

DRUGS (12)
  1. HYDROCORTISON                      /00028601/ [Concomitant]
     Active Substance: HYDROCORTISONE
     Dosage: 50 UNK, ONCE DAILY
     Route: 065
     Dates: start: 20161228, end: 20161228
  2. TACROLIMUS. [Suspect]
     Active Substance: TACROLIMUS
     Route: 048
     Dates: start: 20170410
  3. METHYLPREDNISOLON                  /00049601/ [Concomitant]
     Active Substance: METHYLPREDNISOLONE
     Dosage: 8 UNK, ONCE DAILY
     Route: 065
     Dates: start: 20161225, end: 20161226
  4. TACROLIMUS. [Suspect]
     Active Substance: TACROLIMUS
     Route: 048
     Dates: start: 20161223, end: 20161228
  5. HYDROCORTISON                      /00028601/ [Concomitant]
     Active Substance: HYDROCORTISONE
     Indication: IMMUNOSUPPRESSION
     Dosage: 20 UNK, ONCE DAILY
     Route: 065
     Dates: start: 20161223, end: 20161223
  6. HYDROCORTISON                      /00028601/ [Concomitant]
     Active Substance: HYDROCORTISONE
     Dosage: 50 UNK, ONCE DAILY
     Route: 065
     Dates: start: 20161223, end: 20161225
  7. METHYLPREDNISOLON                  /00049601/ [Concomitant]
     Active Substance: METHYLPREDNISOLONE
     Dosage: 4 UNK, ONCE DAILY
     Route: 065
     Dates: start: 20161227
  8. TACROLIMUS. [Suspect]
     Active Substance: TACROLIMUS
     Route: 048
     Dates: start: 20161229, end: 20170129
  9. METHYLPREDNISOLON                  /00049601/ [Concomitant]
     Active Substance: METHYLPREDNISOLONE
     Indication: IMMUNOSUPPRESSION
     Dosage: 20 UNK, ONCE DAILY
     Route: 065
     Dates: start: 20161221, end: 20161222
  10. HYDROCORTISON                      /00028601/ [Concomitant]
     Active Substance: HYDROCORTISONE
     Dosage: 50 UNK, ONCE DAILY
     Route: 065
     Dates: start: 20170104, end: 20170106
  11. TACROLIMUS. [Suspect]
     Active Substance: TACROLIMUS
     Indication: RENAL TRANSPLANT
     Route: 048
     Dates: start: 20150602, end: 20161222
  12. TACROLIMUS. [Suspect]
     Active Substance: TACROLIMUS
     Route: 048
     Dates: start: 20170130, end: 20170409

REACTIONS (5)
  - Cellulitis [Recovered/Resolved]
  - Lymphangitis [Recovered/Resolved]
  - Influenza [Recovered/Resolved]
  - Squamous cell carcinoma of skin [Not Recovered/Not Resolved]
  - Small intestinal obstruction [Recovered/Resolved]

NARRATIVE: CASE EVENT DATE: 20161009
